FAERS Safety Report 20604888 (Version 1)
Quarter: 2022Q1

REPORT INFORMATION
  Report Type: Report from Study
  Country: IT (occurrence: IT)
  Receive Date: 20220317
  Receipt Date: 20220317
  Transmission Date: 20220423
  Serious: Yes (Death, Other)
  Sender: FDA-Public Use
  Company Number: IT-NOVARTISPH-NVSC2022IT059404

PATIENT
  Age: 73 Year
  Sex: Female
  Weight: 65 kg

DRUGS (3)
  1. CAPMATINIB [Suspect]
     Active Substance: CAPMATINIB
     Indication: Non-small cell lung cancer
     Dosage: 800 MG, QD(4 CP AFTER LUNCH AND 4 CP AFTER DINNER)
     Route: 065
     Dates: start: 20220302, end: 20220309
  2. METFORMIN HYDROCHLORIDE [Concomitant]
     Active Substance: METFORMIN HYDROCHLORIDE
     Indication: Diabetes mellitus
     Dosage: 500 MG(1+1 CPS)
     Route: 065
     Dates: start: 20220309
  3. FUROSEMIDE [Concomitant]
     Active Substance: FUROSEMIDE
     Indication: Hypertension
     Dosage: 25 MG(1/2 CP)
     Route: 065
     Dates: start: 20220309

REACTIONS (14)
  - Respiratory arrest [Fatal]
  - Metabolic acidosis [Unknown]
  - Vomiting [Unknown]
  - Syncope [Recovered/Resolved]
  - Multiple organ dysfunction syndrome [Unknown]
  - Hypotension [Unknown]
  - Anuria [Unknown]
  - Loss of consciousness [Unknown]
  - Coma [Unknown]
  - Hypocapnia [Unknown]
  - White blood cell count increased [Unknown]
  - Neutrophil count increased [Unknown]
  - Platelet count increased [Unknown]
  - Activated partial thromboplastin time prolonged [Unknown]

NARRATIVE: CASE EVENT DATE: 20220309
